FAERS Safety Report 18293285 (Version 1)
Quarter: 2020Q3

REPORT INFORMATION
  Report Type: Spontaneous
  Country: CA (occurrence: CA)
  Receive Date: 20200922
  Receipt Date: 20200922
  Transmission Date: 20201103
  Serious: Yes (Hospitalization)
  Sender: FDA-Public Use
  Company Number: CA-ACCORD-201863

PATIENT
  Age: 57 Year
  Sex: Female
  Weight: 50 kg

DRUGS (10)
  1. SYNTHROID [Concomitant]
     Active Substance: LEVOTHYROXINE SODIUM
     Dosage: NOT SPECIFIED
  2. DILAUDID [Concomitant]
     Active Substance: HYDROMORPHONE HYDROCHLORIDE
     Dosage: LIQUID INTRAMUSCULAR
  3. LOPERAMIDE [Concomitant]
     Active Substance: LOPERAMIDE
     Dosage: NOT SPECIFIED
  4. LYRICA [Concomitant]
     Active Substance: PREGABALIN
  5. NAPROXEN. [Concomitant]
     Active Substance: NAPROXEN
  6. TYLENOL ARTHRITIS PAIN [Concomitant]
     Active Substance: ACETAMINOPHEN
  7. SENOKOT [Concomitant]
     Active Substance: SENNOSIDES
     Dosage: NOT SPECIFIED
  8. HYDROMORPHONE [Concomitant]
     Active Substance: HYDROMORPHONE
     Dosage: CAPSULE, SUSTAINED RELEASE
  9. PREDNISONE. [Concomitant]
     Active Substance: PREDNISONE
     Dosage: NOT SPECIFIED
  10. DOCETAXEL. [Suspect]
     Active Substance: DOCETAXEL
     Indication: LUNG NEOPLASM
     Dosage: INJECTION USP,LIQUID INTRAVENOUS
     Route: 042

REACTIONS (3)
  - Gastrointestinal pathogen panel [Recovered/Resolved]
  - Diarrhoea [Recovered/Resolved]
  - Bacterial test negative [Recovered/Resolved]
